FAERS Safety Report 7283428-4 (Version None)
Quarter: 2011Q1

REPORT INFORMATION
  Report Type: 
  Country: None (occurrence: None)
  Receive Date: 20110209
  Receipt Date: 20101208
  Transmission Date: 20110831
  Serious: No
  Sender: FDA-Public Use
  Company Number: A0894357A

PATIENT
  Sex: Male

DRUGS (2)
  1. PAROXETINE HCL [Suspect]
     Indication: DEPRESSION
  2. PAXIL [Suspect]
     Indication: ELECTROLYTE IMBALANCE
     Route: 048

REACTIONS (6)
  - GASTRIC DISORDER [None]
  - FLATULENCE [None]
  - DRUG INTOLERANCE [None]
  - CHANGE OF BOWEL HABIT [None]
  - ABDOMINAL DISTENSION [None]
  - BLADDER DISORDER [None]
